FAERS Safety Report 9295408 (Version 1)
Quarter: 2013Q1

REPORT INFORMATION
  Report Type: Spontaneous
  Country: US (occurrence: None)
  Receive Date: 20121227
  Receipt Date: 20121227
  Transmission Date: 20140127
  Serious: No
  Sender: FDA-Public Use
  Company Number: PHEH2012US022516

PATIENT
  Age: 58 Year
  Sex: Male

DRUGS (8)
  1. AFINITOR [Suspect]
     Indication: RENAL CANCER
     Route: 048
     Dates: start: 20121022
  2. ASPIRIN ((ACETYLSALICYLIC ACID) [Concomitant]
  3. MULTIVITAMIN (ASCORBIC ACID, CALCIUM PANTOTHENATE, ERGOCALCIFEROL, NICOTINAMIDE, PYRIDOXINE HYDROCHOLORIDE, RETINOL, RIBOFLAVIN, THIAMINE HYDROCHLORIDE) [Concomitant]
  4. FISH OIL (FISH OIL) [Concomitant]
  5. VITAMIN B (VITAMIN B COMPLEX) [Concomitant]
  6. HYDROCHLOROTHIAZIDE (HYDROCHLOROTHIAZIDE) [Concomitant]
  7. FAMOTIDINE (FAMOTIDINE) [Concomitant]
  8. IMODIUM A-D (LOPERAMIDE HYDROCHLORIDE) [Concomitant]

REACTIONS (5)
  - Hypersomnia [None]
  - Fatigue [None]
  - Gait disturbance [None]
  - Pallor [None]
  - Diarrhoea [None]
